FAERS Safety Report 7578775-2 (Version None)
Quarter: 2011Q2

REPORT INFORMATION
  Report Type: 
  Country: None (occurrence: None)
  Receive Date: 20110628
  Receipt Date: 20110615
  Transmission Date: 20111010
  Serious: Yes (Hospitalization, Disabling)
  Sender: FDA-Public Use
  Company Number: ES-MYLANLABS-2011S1012759

PATIENT
  Age: 66 Year
  Sex: Female

DRUGS (4)
  1. QUETIAPINE [Interacting]
     Dosage: 800 MG/DAY
     Route: 065
     Dates: start: 20070301
  2. VALPROIC ACID [Suspect]
     Indication: BIPOLAR DISORDER
     Dosage: MEDIAN DOSE 1G DAILY; PLASMA CONCENTRATION MAINTAINED 50-100 MG/L
     Route: 065
  3. VALPROIC ACID [Interacting]
     Dosage: 1500 MG/DAY
     Route: 065
  4. QUETIAPINE [Interacting]
     Indication: BIPOLAR DISORDER
     Dosage: 300 MG/DAY
     Route: 065
     Dates: start: 20070301

REACTIONS (3)
  - PARKINSONISM [None]
  - DRUG INTERACTION [None]
  - COGNITIVE DISORDER [None]
